FAERS Safety Report 9018081 (Version 1)
Quarter: 2013Q1

REPORT INFORMATION
  Report Type: Spontaneous
  Country: US (occurrence: None)
  Receive Date: 20130110
  Receipt Date: 20130110
  Transmission Date: 20140127
  Serious: Yes (Disabling)
  Sender: FDA-Public Use
  Company Number: None

PATIENT
  Age: 34 Year
  Sex: Male
  Weight: 88.45 kg

DRUGS (1)
  1. ZICAM COLD REMEDY RAPIDMELTS WITH ECHINA CEA [Suspect]
     Indication: NASOPHARYNGITIS
     Dosage: 1 CHEWABLE EVERY 3 HOURS PO
     Route: 048
     Dates: start: 20121210, end: 20121222

REACTIONS (3)
  - Ageusia [None]
  - Anosmia [None]
  - Product quality issue [None]
